FAERS Safety Report 6116714-1 (Version None)
Quarter: 2009Q1

REPORT INFORMATION
  Report Type: 
  Country: None (occurrence: None)
  Receive Date: 20090314
  Receipt Date: 20081223
  Transmission Date: 20090719
  Serious: No
  Sender: FDA-Public Use
  Company Number: US-ABBOTT-08P-163-0494812-00

PATIENT
  Sex: Male
  Weight: 86.26 kg

DRUGS (14)
  1. HUMIRA [Suspect]
     Indication: PSORIATIC ARTHROPATHY
     Route: 058
     Dates: start: 20080901
  2. HUMIRA [Suspect]
     Route: 058
  3. OPANA [Suspect]
     Indication: PAIN
  4. OPANA [Suspect]
  5. RANITIDINE [Concomitant]
     Indication: GASTROOESOPHAGEAL REFLUX DISEASE
  6. METFORMIN HCL [Concomitant]
     Indication: TYPE 2 DIABETES MELLITUS
  7. PIROXICAM [Concomitant]
     Indication: GASTROOESOPHAGEAL REFLUX DISEASE
  8. EFFEXOR [Concomitant]
     Indication: PAIN
  9. PROVIGIL [Concomitant]
     Indication: SEDATION
  10. METHOTREXATE [Concomitant]
     Indication: PSORIATIC ARTHROPATHY
  11. FOLIC ACID [Concomitant]
     Indication: PSORIATIC ARTHROPATHY
  12. LOTREL [Concomitant]
     Indication: HYPERTENSION
  13. LORAZEPAM [Concomitant]
     Indication: STRESS
  14. ATENOLOL [Concomitant]
     Indication: HYPERTENSION

REACTIONS (5)
  - DISORIENTATION [None]
  - DIZZINESS [None]
  - DYSGEUSIA [None]
  - HALLUCINATION [None]
  - HYPOPHAGIA [None]
